FAERS Safety Report 8291471-1 (Version None)
Quarter: 2012Q2

REPORT INFORMATION
  Report Type: 
  Country: None (occurrence: None)
  Receive Date: 20120417
  Receipt Date: 20120411
  Transmission Date: 20120825
  Serious: Yes (Other)
  Sender: FDA-Public Use
  Company Number: US-PFIZER INC-2012038900

PATIENT
  Sex: Female
  Weight: 81 kg

DRUGS (15)
  1. LYRICA [Suspect]
     Indication: PAIN
  2. OXYCODONE HCL [Suspect]
     Indication: PAIN
     Dosage: 30 MG, 3X/DAY
  3. CYMBALTA [Concomitant]
     Dosage: UNK
  4. ADVAIR DISKUS 100/50 [Concomitant]
     Dosage: UNK
  5. ISOSORBIDE [Concomitant]
     Dosage: UNK
  6. METOPROLOL [Concomitant]
     Indication: HYPERTENSION
     Dosage: UNK
  7. LYRICA [Suspect]
     Indication: NEUROPATHY PERIPHERAL
     Dosage: 600 MG, 3X/DAY
     Dates: end: 20120202
  8. NEXIUM [Concomitant]
     Dosage: UNK
  9. LYRICA [Suspect]
  10. OXYCONTIN [Suspect]
     Indication: PAIN
     Dosage: 80 MG, 2X/DAY
  11. COLESTIPOL [Concomitant]
     Dosage: UNK
  12. LIPITOR [Concomitant]
     Indication: BLOOD CHOLESTEROL INCREASED
     Dosage: UNK
  13. TOPROL-XL [Concomitant]
     Indication: CARDIAC DISORDER
     Dosage: 25 MG, UNK
  14. LYRICA [Suspect]
     Indication: PARAESTHESIA
  15. ACETYLSALICYLIC ACID [Concomitant]
     Dosage: UNK

REACTIONS (15)
  - SPINAL FUSION SURGERY [None]
  - VARICOSE VEIN [None]
  - VEIN DISCOLOURATION [None]
  - BALANCE DISORDER [None]
  - WEIGHT INCREASED [None]
  - MYALGIA [None]
  - BACK DISORDER [None]
  - HAEMORRHAGE [None]
  - GAIT DISTURBANCE [None]
  - FALL [None]
  - DRUG INEFFECTIVE [None]
  - PAIN [None]
  - HIP ARTHROPLASTY [None]
  - OEDEMA PERIPHERAL [None]
  - VISION BLURRED [None]
